FAERS Safety Report 5528563-3 (Version None)
Quarter: 2007Q4

REPORT INFORMATION
  Report Type: 
  Country: None (occurrence: None)
  Receive Date: 20071123
  Receipt Date: 20071031
  Transmission Date: 20080405
  Serious: Yes (Other)
  Sender: FDA-Public Use
  Company Number: 2007S1011330

PATIENT
  Age: 79 Year
  Sex: Female

DRUGS (12)
  1. CIPROFLOXACIN [Suspect]
     Indication: LOWER RESPIRATORY TRACT INFECTION
     Dosage: 750 MG; ORAL
     Route: 048
     Dates: start: 20070828, end: 20070905
  2. ASPIRIN [Concomitant]
  3. BECLOMETHASONE DIPROPIONATE [Concomitant]
  4. CODEINE SUL TAB [Concomitant]
  5. LEVOTHYROXINE SODIUM [Concomitant]
  6. PARACETAMOL [Concomitant]
  7. PROPAFENONE HYDROCHLORIDE [Concomitant]
  8. RISEDRONATE SODIUM [Concomitant]
  9. SERTRALINE HYDROCHLORIDE [Concomitant]
  10. TIOTROPIUM BROMIDE [Concomitant]
  11. VENTOLIN [Concomitant]
  12. ZOPICLONE [Concomitant]

REACTIONS (1)
  - BRONCHIECTASIS [None]
